FAERS Safety Report 21624517 (Version 1)
Quarter: 2022Q4

REPORT INFORMATION
  Report Type: Spontaneous
  Country: BE (occurrence: BE)
  Receive Date: 20221121
  Receipt Date: 20221121
  Transmission Date: 20230113
  Serious: Yes (Hospitalization)
  Sender: FDA-Public Use
  Company Number: BE-JNJFOC-20221135618

PATIENT
  Age: 78 Year
  Sex: Male

DRUGS (2)
  1. ERLEADA [Suspect]
     Active Substance: APALUTAMIDE
     Indication: Hormone-dependent prostate cancer
     Route: 048
     Dates: end: 20221010
  2. INSUMAN [INSULIN HUMAN] [Concomitant]
     Indication: Type 2 diabetes mellitus

REACTIONS (3)
  - Normocytic anaemia [Unknown]
  - COVID-19 [Unknown]
  - Off label use [Unknown]
